FAERS Safety Report 13134979 (Version 2)
Quarter: 2017Q1

REPORT INFORMATION
  Report Type: Spontaneous
  Country: US (occurrence: US)
  Receive Date: 20170120
  Receipt Date: 20170201
  Transmission Date: 20170428
  Serious: Yes (Other)
  Sender: FDA-Public Use
  Company Number: US-LEO PHARMA-245527

PATIENT
  Age: 67 Year
  Sex: Female

DRUGS (2)
  1. PICATO [Suspect]
     Active Substance: INGENOL MEBUTATE
     Indication: ACTINIC KERATOSIS
     Route: 061
     Dates: start: 20170112, end: 20170113
  2. SPIRONOLACTONE-HCTZ 25/25 [Concomitant]
     Indication: HYPERTENSION
     Dosage: 25/25
     Route: 048

REACTIONS (4)
  - Application site pain [Recovered/Resolved]
  - Drug administration error [Unknown]
  - Blood pressure increased [Recovered/Resolved]
  - Application site erythema [Recovered/Resolved]

NARRATIVE: CASE EVENT DATE: 20170112
